FAERS Safety Report 6363735-X (Version None)
Quarter: 2009Q3

REPORT INFORMATION
  Report Type: 
  Country: None (occurrence: None)
  Receive Date: 20090919
  Receipt Date: 20090707
  Transmission Date: 20100115
  Serious: No
  Sender: FDA-Public Use
  Company Number: US-ABBOTT-09P-163-0584210-00

PATIENT
  Sex: Female
  Weight: 83.99 kg

DRUGS (8)
  1. HUMIRA [Suspect]
     Indication: PSORIASIS
     Dosage: PFS
     Route: 058
     Dates: start: 20060401, end: 20070901
  2. HUMIRA [Suspect]
     Indication: PSORIATIC ARTHROPATHY
     Dosage: PEN
     Route: 058
     Dates: start: 20080301, end: 20080801
  3. HUMIRA [Suspect]
     Dosage: PFS
     Route: 058
     Dates: start: 20080901
  4. LORTAB [Concomitant]
     Indication: BACK PAIN
     Dosage: 10/500 DAILY   PRN
     Route: 048
  5. XANAX [Concomitant]
     Indication: DRUG USE FOR UNKNOWN INDICATION
     Route: 048
  6. ACIPHEX [Concomitant]
     Indication: GASTROOESOPHAGEAL REFLUX DISEASE
     Route: 048
  7. NOVOLIN INSULIN [Concomitant]
     Indication: DIABETES MELLITUS
     Dosage: AM + PM
     Route: 058
     Dates: start: 20071001
  8. NOVOLOG PEN [Concomitant]
     Indication: DIABETES MELLITUS
     Dosage: LUNCH TIME
     Route: 058
     Dates: start: 20071001

REACTIONS (2)
  - PSORIASIS [None]
  - PSORIATIC ARTHROPATHY [None]
